FAERS Safety Report 18435363 (Version 5)
Quarter: 2021Q1

REPORT INFORMATION
  Report Type: Other
  Country: JP (occurrence: JP)
  Receive Date: 20201027
  Receipt Date: 20210317
  Transmission Date: 20210419
  Serious: Yes (Death, Life-Threatening, Hospitalization, Other)
  Sender: FDA-Public Use
  Company Number: JP-ROCHE-2703186

PATIENT
  Age: 75 Year
  Sex: Female
  Weight: 31 kg

DRUGS (9)
  1. TECENTRIQ [Suspect]
     Active Substance: ATEZOLIZUMAB
     Indication: NON-SMALL CELL LUNG CANCER
     Route: 041
     Dates: start: 20200826, end: 20200916
  2. MAGMITT [Concomitant]
     Active Substance: MAGNESIUM OXIDE
     Indication: CONSTIPATION
     Route: 048
  3. ABRAXANE [Suspect]
     Active Substance: PACLITAXEL
     Route: 041
     Dates: start: 20200916, end: 20200916
  4. ABRAXANE [Suspect]
     Active Substance: PACLITAXEL
     Indication: PRODUCT USED FOR UNKNOWN INDICATION
     Route: 041
     Dates: start: 20200826, end: 20200902
  5. ALOXI [Concomitant]
     Active Substance: PALONOSETRON HYDROCHLORIDE
     Dosage: DOSAGE IS UNCERTAIN.
     Route: 041
     Dates: start: 20200916, end: 20200916
  6. CARBOPLATIN. [Suspect]
     Active Substance: CARBOPLATIN
     Indication: NON-SMALL CELL LUNG CANCER
     Route: 041
     Dates: start: 20200826, end: 20200916
  7. DEXART [Concomitant]
     Active Substance: DEXAMETHASONE SODIUM PHOSPHATE
     Dosage: DOSAGE IS UNCERTAIN.
     Route: 065
     Dates: start: 20200916, end: 20200916
  8. APREPITANT. [Concomitant]
     Active Substance: APREPITANT
     Dosage: DOSAGE IS UNCERTAIN.
     Route: 048
     Dates: start: 20200916, end: 20200918
  9. CALONAL [Concomitant]
     Active Substance: ACETAMINOPHEN
     Indication: PAIN
     Route: 048

REACTIONS (12)
  - Myocarditis [Fatal]
  - Cerebrovascular accident [Recovering/Resolving]
  - Aortic arteriosclerosis [Unknown]
  - Blood pressure increased [Unknown]
  - Atrioventricular block complete [Recovering/Resolving]
  - Vascular shunt [Unknown]
  - Myositis [Unknown]
  - Blood creatine phosphokinase increased [Recovering/Resolving]
  - Neutrophil count decreased [Unknown]
  - Troponin I increased [Not Recovered/Not Resolved]
  - Myasthenia gravis [Fatal]
  - Hepatic enzyme increased [Recovering/Resolving]

NARRATIVE: CASE EVENT DATE: 20200909
